FAERS Safety Report 18257767 (Version 2)
Quarter: 2020Q4

REPORT INFORMATION
  Report Type: Spontaneous
  Country: US (occurrence: US)
  Receive Date: 20200911
  Receipt Date: 20201030
  Transmission Date: 20210113
  Serious: Yes (Other)
  Sender: FDA-Public Use
  Company Number: US-SA-2020SA247216

PATIENT

DRUGS (3)
  1. TAMSULOSIN HYDROCHLORIDE. [Suspect]
     Active Substance: TAMSULOSIN HYDROCHLORIDE
     Indication: LOWER URINARY TRACT SYMPTOMS
     Dosage: UNK
  2. ELIGARD [Suspect]
     Active Substance: LEUPROLIDE ACETATE
     Indication: PROSTATE CANCER
     Dosage: 30 MG, Q4M
     Route: 058
     Dates: start: 20200319
  3. ELIGARD [Suspect]
     Active Substance: LEUPROLIDE ACETATE
     Dosage: 30 MG, Q4M
     Route: 058

REACTIONS (5)
  - Injection site necrosis [Recovering/Resolving]
  - Injection site erythema [Recovering/Resolving]
  - Injection site abscess [Recovering/Resolving]
  - Product use in unapproved indication [Unknown]
  - Injection site pain [Recovering/Resolving]
